FAERS Safety Report 6177006-8 (Version None)
Quarter: 2009Q2

REPORT INFORMATION
  Report Type: 
  Country: None (occurrence: None)
  Receive Date: 20090501
  Receipt Date: 20090304
  Transmission Date: 20091009
  Serious: Yes (Other)
  Sender: FDA-Public Use
  Company Number: US-ALEXION-A200900106

PATIENT
  Sex: Female

DRUGS (4)
  1. SOLIRIS [Suspect]
     Indication: PAROXYSMAL NOCTURNAL HAEMOGLOBINURIA
     Dosage: 600 MG, QW
     Route: 042
     Dates: start: 20071114, end: 20071128
  2. SOLIRIS [Suspect]
     Dosage: 600 MG,
     Route: 042
     Dates: start: 20071212, end: 20071212
  3. SOLIRIS [Suspect]
     Dosage: 900 MG, UNK
     Route: 042
     Dates: end: 20090204
  4. COMPAZINE                          /00013302/ [Concomitant]
     Indication: NAUSEA
     Dosage: UNK

REACTIONS (7)
  - ANAEMIA [None]
  - BLOOD COUNT ABNORMAL [None]
  - BODY TEMPERATURE INCREASED [None]
  - CHILLS [None]
  - DRUG INEFFECTIVE [None]
  - FEELING ABNORMAL [None]
  - TRANSFUSION REACTION [None]
